FAERS Safety Report 4986722-2 (Version None)
Quarter: 2006Q2

REPORT INFORMATION
  Report Type: 
  Country: None (occurrence: None)
  Receive Date: 20060428
  Receipt Date: 20051206
  Transmission Date: 20061013
  Serious: Yes (Hospitalization)
  Sender: FDA-Public Use
  Company Number: NZ-MERCK-0512NZL00007

PATIENT
  Age: 54 Year
  Sex: Male
  Weight: 80 kg

DRUGS (6)
  1. VIOXX [Suspect]
     Indication: INTERVERTEBRAL DISC PROTRUSION
     Route: 048
     Dates: start: 20020201, end: 20040801
  2. VIOXX [Suspect]
     Indication: BACK PAIN
     Route: 048
     Dates: start: 20020201, end: 20040801
  3. ENALAPRIL MALEATE [Concomitant]
     Route: 065
     Dates: start: 19850101, end: 20030101
  4. METOPROLOL [Concomitant]
     Indication: HYPERTENSION
     Route: 065
     Dates: start: 20020901, end: 20021201
  5. DILTIAZEM HYDROCHLORIDE [Concomitant]
     Route: 065
     Dates: start: 20020117, end: 20021201
  6. FELODIPINE [Concomitant]
     Route: 065
     Dates: start: 20000501, end: 20020901

REACTIONS (3)
  - DEPRESSION [None]
  - MYOCARDIAL INFARCTION [None]
  - SUICIDAL IDEATION [None]
